FAERS Safety Report 8828332 (Version 2)
Quarter: 2012Q4

REPORT INFORMATION
  Report Type: Report from Study
  Country: JP (occurrence: JP)
  Receive Date: 20121005
  Receipt Date: 20121023
  Transmission Date: 20130627
  Serious: Yes (Hospitalization)
  Sender: FDA-Public Use
  Company Number: JP-SANOFI-AVENTIS-2012SA072512

PATIENT
  Age: 70 Year
  Sex: Female
  Weight: 57.4 kg

DRUGS (10)
  1. CLOPIDOGREL BISULFATE [Suspect]
     Indication: ANGINA UNSTABLE
     Route: 065
     Dates: start: 20110415, end: 20110415
  2. CLOPIDOGREL BISULFATE [Suspect]
     Indication: ANGINA UNSTABLE
     Route: 065
     Dates: start: 20110416, end: 20110720
  3. BAYASPIRIN [Concomitant]
     Dates: start: 20110416
  4. ITAVASTATIN [Concomitant]
  5. TAKEPRON OD [Concomitant]
     Dates: start: 20110415
  6. IMIDAPRIL HYDROCHLORIDE [Concomitant]
     Dates: start: 20110415
  7. MAGNESIUM OXIDE [Concomitant]
     Dates: start: 20110415
  8. JANUVIA [Concomitant]
     Dates: start: 20110417
  9. AMARYL [Concomitant]
     Dates: start: 20110425
  10. NITROGLYCERIN ^A.L.^ [Concomitant]
     Dates: start: 20110720, end: 20110720

REACTIONS (1)
  - Coronary artery restenosis [Recovered/Resolved]
